FAERS Safety Report 8929168 (Version 1)
Quarter: 2012Q4

REPORT INFORMATION
  Report Type: 
  Country: FR (occurrence: FR)
  Receive Date: 20121127
  Receipt Date: 20121127
  Transmission Date: 20130627
  Serious: Yes (Hospitalization)
  Sender: FDA-Public Use
  Company Number: PHHY2012FR107650

PATIENT
  Age: 65 Year
  Sex: Female
  Weight: 66 kg

DRUGS (16)
  1. MYFORTIC [Suspect]
     Dosage: UNK UKN, UNK
     Route: 048
     Dates: start: 20120831, end: 20120906
  2. TAVANIC [Suspect]
     Indication: ANTIBIOTIC PROPHYLAXIS
     Dosage: UNK UKN, UNK
     Route: 048
     Dates: end: 20120904
  3. XANAX [Suspect]
     Indication: ANXIETY
     Dosage: UNK UKN, UNK
     Route: 048
     Dates: start: 20120821, end: 20120906
  4. ZYVOXID [Suspect]
     Dosage: 600 mg, BID
     Route: 048
     Dates: start: 20120804, end: 20120907
  5. ZOPHREN [Concomitant]
     Dosage: 8 mg, TID
     Route: 048
     Dates: start: 20120821, end: 20120906
  6. ULCAR [Concomitant]
     Indication: GASTROINTESTINAL ULCER
     Dosage: UNK UKN, UNK
     Route: 048
     Dates: start: 20120804, end: 20120906
  7. TAZOCILLINE [Concomitant]
     Dosage: 4 g, QID
     Route: 042
     Dates: start: 20120823
  8. FOSFOCINE [Concomitant]
     Dosage: 4 g, TID
     Route: 042
     Dates: start: 20120824, end: 20120906
  9. CANCIDAS [Concomitant]
     Dosage: 50 mg, QD
     Route: 048
     Dates: start: 20120517
  10. ZELITREX [Concomitant]
     Dosage: 500 mg, BID
     Route: 048
     Dates: start: 20120804
  11. BACTRIM [Concomitant]
     Dosage: UNK UKN, UNK
     Route: 048
     Dates: start: 20120810
  12. RAPAMUNE [Concomitant]
     Dosage: 2.5 mg, QD
     Dates: start: 20120606
  13. ENTOCORT [Concomitant]
     Dosage: UNK UKN, UNK
  14. LASILIX [Concomitant]
     Dosage: 60 mg, UNK
  15. CORDARONE [Concomitant]
     Dosage: UNK UKN, UNK
  16. INEXIUM//ESOMEPRAZOLE MAGNESIUM [Concomitant]
     Dosage: 40 mg, QD

REACTIONS (6)
  - Nervous system disorder [Recovering/Resolving]
  - Confusional state [Recovering/Resolving]
  - Disorientation [Unknown]
  - Delirium [Recovering/Resolving]
  - Hallucinations, mixed [Recovering/Resolving]
  - Abnormal dreams [Unknown]
